FAERS Safety Report 16383326 (Version 1)
Quarter: 2019Q2

REPORT INFORMATION
  Report Type: Spontaneous
  Country: US (occurrence: US)
  Receive Date: 20190603
  Receipt Date: 20190603
  Transmission Date: 20190711
  Serious: No
  Sender: FDA-Public Use
  Company Number: US-PFIZER INC-2019230519

PATIENT
  Age: 40 Year
  Sex: Male

DRUGS (3)
  1. KLONOPIN [Suspect]
     Active Substance: CLONAZEPAM
     Dosage: UNK
  2. CODEINE [Suspect]
     Active Substance: CODEINE
     Dosage: UNK
  3. FENTANYL CITRATE. [Suspect]
     Active Substance: FENTANYL CITRATE
     Dosage: UNK

REACTIONS (4)
  - Somnolence [Unknown]
  - Dyspepsia [Unknown]
  - Quality of life decreased [Unknown]
  - Toxicity to various agents [Unknown]
